FAERS Safety Report 6694629-8 (Version None)
Quarter: 2010Q2

REPORT INFORMATION
  Report Type: 
  Country: None (occurrence: None)
  Receive Date: 20100423
  Receipt Date: 20100413
  Transmission Date: 20101027
  Serious: Yes (Other)
  Sender: FDA-Public Use
  Company Number: BR-ABBOTT-10P-020-0638728-00

PATIENT
  Sex: Female
  Weight: 83 kg

DRUGS (12)
  1. HUMIRA [Suspect]
     Indication: RHEUMATOID ARTHRITIS
     Route: 058
     Dates: start: 20071129, end: 20100218
  2. HUMIRA [Suspect]
     Route: 058
     Dates: start: 20100412
  3. OMEPRAZOLE [Concomitant]
     Indication: GASTRIC DISORDER
     Route: 048
  4. PREDNISONE [Concomitant]
     Indication: PAIN
     Route: 048
  5. DIAZEPAM [Concomitant]
     Indication: INSOMNIA
     Route: 048
  6. FLUOXETINE [Concomitant]
     Indication: DEPRESSION
     Route: 048
  7. PROPRANOLOL [Concomitant]
     Indication: HYPERTENSION
     Route: 048
  8. HYDROCHLOROTHIAZIDE [Concomitant]
     Indication: DIURETIC THERAPY
     Route: 048
  9. IBUPROFEN [Concomitant]
     Indication: PAIN
     Route: 048
  10. METHOTREXATE [Concomitant]
     Indication: RHEUMATOID ARTHRITIS
     Route: 030
  11. FOLIC ACID [Concomitant]
     Indication: BONE DISORDER
     Route: 048
  12. NORTRIPTYLINE HCL [Concomitant]
     Indication: HEADACHE
     Route: 048

REACTIONS (14)
  - ASTHENIA [None]
  - BACK PAIN [None]
  - BURSITIS [None]
  - CEREBRAL CYST [None]
  - DENGUE FEVER [None]
  - GENERALISED ERYTHEMA [None]
  - HEADACHE [None]
  - HOT FLUSH [None]
  - HYPOTENSION [None]
  - PRURITUS GENERALISED [None]
  - PYREXIA [None]
  - SKIN BURNING SENSATION [None]
  - SKIN EXFOLIATION [None]
  - SPINAL OSTEOARTHRITIS [None]
